FAERS Safety Report 17303321 (Version 1)
Quarter: 2020Q1

REPORT INFORMATION
  Report Type: Report from Study
  Country: JP (occurrence: JP)
  Receive Date: 20200122
  Receipt Date: 20200122
  Transmission Date: 20200409
  Serious: Yes (Hospitalization, Disabling)
  Sender: FDA-Public Use
  Company Number: JP-EISAI MEDICAL RESEARCH-EC-2020-068720

PATIENT
  Age: 75 Year
  Sex: Male
  Weight: 56 kg

DRUGS (6)
  1. LENVIMA [Suspect]
     Active Substance: LENVATINIB
     Indication: HEPATOCELLULAR CARCINOMA
     Route: 048
     Dates: start: 20181214, end: 20190111
  2. LENVIMA [Suspect]
     Active Substance: LENVATINIB
     Route: 048
     Dates: start: 20190112, end: 20190416
  3. LENVIMA [Suspect]
     Active Substance: LENVATINIB
     Dosage: 5 DAYS ON 2 DAYS OFF, SUSPENSION ON WEEKENDS
     Route: 048
     Dates: start: 20190417, end: 20190430
  4. LENVIMA [Suspect]
     Active Substance: LENVATINIB
     Route: 048
     Dates: start: 20190501, end: 20190510
  5. LOXONIN [Concomitant]
     Active Substance: LOXOPROFEN SODIUM
  6. AIMIX [Concomitant]
     Active Substance: AMLODIPINE BESYLATE\IRBESARTAN

REACTIONS (1)
  - Cerebral aspergillosis [Recovered/Resolved with Sequelae]

NARRATIVE: CASE EVENT DATE: 20190510
